FAERS Safety Report 8028737-6 (Version None)
Quarter: 2012Q1

REPORT INFORMATION
  Report Type: 
  Country: None (occurrence: None)
  Receive Date: 20120106
  Receipt Date: 20120105
  Transmission Date: 20120608
  Serious: Yes (Other)
  Sender: FDA-Public Use
  Company Number: DE-MERCK-1201DEU00011

PATIENT
  Age: 73 Year
  Sex: Female

DRUGS (1)
  1. PROSCAR [Suspect]
     Route: 048

REACTIONS (1)
  - PROSTATE CANCER [None]
